FAERS Safety Report 26056159 (Version 1)
Quarter: 2025Q4

REPORT INFORMATION
  Report Type: Spontaneous
  Country: EU (occurrence: EU)
  Receive Date: 20251118
  Receipt Date: 20251118
  Transmission Date: 20260118
  Serious: Yes (Other)
  Sender: CELLTRION
  Company Number: EU-ABBVIE-6536422

PATIENT

DRUGS (2)
  1. ADALIMUMAB [Suspect]
     Active Substance: ADALIMUMAB
     Indication: Colitis ulcerative
     Dosage: UNK
     Route: 058
     Dates: start: 2022
  2. ADALIMUMAB [Suspect]
     Active Substance: ADALIMUMAB

REACTIONS (4)
  - Colitis [Unknown]
  - Rectal ulcer [Unknown]
  - Drug level abnormal [Unknown]
  - Faecal calprotectin abnormal [Unknown]

NARRATIVE: CASE EVENT DATE: 20250101
